FAERS Safety Report 6569732-3 (Version None)
Quarter: 2010Q1

REPORT INFORMATION
  Report Type: 
  Country: None (occurrence: None)
  Receive Date: 20100125
  Receipt Date: 20091120
  Transmission Date: 20100710
  Serious: Yes (Other)
  Sender: FDA-Public Use
  Company Number: 2005BI003566

PATIENT
  Age: 45 Year
  Sex: Female
  Weight: 77.1115 kg

DRUGS (3)
  1. TYSABRI [Suspect]
     Indication: MULTIPLE SCLEROSIS
     Dosage: 300 MG;QM;IV
     Route: 042
     Dates: start: 20050101, end: 20050203
  2. CON MEDS [Concomitant]
  3. AVONEX [Concomitant]

REACTIONS (5)
  - ANAPHYLACTIC REACTION [None]
  - CHEST DISCOMFORT [None]
  - DEPRESSED MOOD [None]
  - DYSPNOEA [None]
  - URTICARIA [None]
